FAERS Safety Report 15682789 (Version 1)
Quarter: 2018Q4

REPORT INFORMATION
  Report Type: Spontaneous
  Country: FR (occurrence: FR)
  Receive Date: 20181203
  Receipt Date: 20181203
  Transmission Date: 20190205
  Serious: Yes (Other)
  Sender: FDA-Public Use
  Company Number: FR-BAYER-2018-219789

PATIENT
  Age: 67 Year
  Sex: Male

DRUGS (2)
  1. STIVARGA [Suspect]
     Active Substance: REGORAFENIB
     Dosage: UNK
     Dates: end: 201706
  2. STIVARGA [Suspect]
     Active Substance: REGORAFENIB
     Dosage: 160 MG, UNK
     Dates: start: 201304, end: 201306

REACTIONS (3)
  - Transaminases increased [None]
  - Pulmonary mass [None]
  - Nasopharyngitis [None]
